FAERS Safety Report 7890005-0 (Version None)
Quarter: 2011Q4

REPORT INFORMATION
  Report Type: 
  Country: None (occurrence: None)
  Receive Date: 20111103
  Receipt Date: 20111026
  Transmission Date: 20120403
  Serious: Yes (Hospitalization, Other)
  Sender: FDA-Public Use
  Company Number: PHHY2011JP94657

PATIENT
  Age: 80 Year
  Sex: Male

DRUGS (1)
  1. VALSARTAN [Suspect]
     Dosage: 80 MG, UNK
     Route: 048
     Dates: start: 20100830, end: 20110719

REACTIONS (1)
  - ENTEROCOLITIS HAEMORRHAGIC [None]
